FAERS Safety Report 20132530 (Version 1)
Quarter: 2021Q4

REPORT INFORMATION
  Report Type: Report from Study
  Country: US (occurrence: US)
  Receive Date: 20211130
  Receipt Date: 20211130
  Transmission Date: 20220304
  Serious: Yes (Other)
  Sender: FDA-Public Use
  Company Number: US-MYLANLABS-2021M1088803

PATIENT

DRUGS (5)
  1. IFOSFAMIDE [Suspect]
     Active Substance: IFOSFAMIDE
     Indication: Hodgkin^s disease
     Dosage: UNK, CYCLE, 5 G/M2 INTRAVENOUSLY OVER 24 H ON DAY 2
     Route: 042
  2. MESNA [Suspect]
     Active Substance: MESNA
     Indication: Hodgkin^s disease
     Dosage: UNK, CYCLE, 5 G/M2 INTRAVENOUSLY OVER 24 H ON DAY 2
     Route: 042
  3. ETOPOSIDE [Suspect]
     Active Substance: ETOPOSIDE
     Indication: Hodgkin^s disease
     Dosage: 100 MILLIGRAM/SQ. METER, CYCLE, ON DAYS 1 TO 3 IN ONE INTRAVENOUS INJECTION PER DAY
     Route: 042
  4. CARBOPLATIN [Suspect]
     Active Substance: CARBOPLATIN
     Indication: Hodgkin^s disease
     Dosage: UNK, CYCLE, AREA UNDER THE CURVE 5 ON DAY 2 IN ONE INTRAVENOUS INJECTION
     Route: 042
  5. BRENTUXIMAB VEDOTIN [Suspect]
     Active Substance: BRENTUXIMAB VEDOTIN
     Indication: Hodgkin^s disease
     Dosage: UNK UNK, CYCLE, ON DAYS 1 AND 8 (BASED ON 3+3 DOSE-ESCALATION SCHEME; CAPPED AT 150MG)
     Route: 042

REACTIONS (3)
  - Enterocolitis infectious [Unknown]
  - Pyrexia [Unknown]
  - Hypotension [Unknown]
